FAERS Safety Report 8855170 (Version 1)
Quarter: 2012Q4

REPORT INFORMATION
  Report Type: 
  Country: US (occurrence: US)
  Receive Date: 20121023
  Receipt Date: 20121023
  Transmission Date: 20130627
  Serious: No
  Sender: FDA-Public Use
  Company Number: US-AMGEN-USASP2012003618

PATIENT
  Age: 61 Year
  Sex: Female
  Weight: 63.49 kg

DRUGS (10)
  1. ENBREL [Suspect]
     Indication: PRODUCT USED FOR UNKNOWN INDICATION
     Dosage: 50 mg, qwk
     Route: 058
  2. WELLBUTRIN [Concomitant]
     Dosage: 100 mg, UNK
  3. AMITRIPTYLINE [Concomitant]
     Dosage: 100 mg, UNK
     Route: 048
  4. RECLAST [Concomitant]
     Dosage: UNK
  5. VITAMIN B [Concomitant]
     Dosage: UNK
     Route: 048
  6. VITAMIN D /00107901/ [Concomitant]
     Dosage: 5000 unit, UNK
     Route: 048
  7. PROBIOTIC [Concomitant]
     Dosage: UNK
     Route: 048
  8. OMEGA 3                            /01334101/ [Concomitant]
     Dosage: UNK
     Route: 048
  9. EPA                                /01403701/ [Concomitant]
     Dosage: UNK
  10. DHA [Concomitant]
     Dosage: UNK

REACTIONS (1)
  - Influenza [Unknown]
